FAERS Safety Report 18178448 (Version 4)
Quarter: 2021Q2

REPORT INFORMATION
  Report Type: Spontaneous
  Country: US (occurrence: US)
  Receive Date: 20200820
  Receipt Date: 20210426
  Transmission Date: 20210717
  Serious: Yes (Death, Life-Threatening, Hospitalization, Disabling, Other)
  Sender: FDA-Public Use
  Company Number: US-TEVA-2020-US-1817291

PATIENT
  Age: 57 Year
  Sex: Female
  Weight: 122 kg

DRUGS (47)
  1. NYSTATIN. [Concomitant]
     Active Substance: NYSTATIN
     Route: 065
  2. CAPHOSOL [Concomitant]
     Active Substance: CALCIUM CHLORIDE\SODIUM CHLORIDE\SODIUM PHOSPHATE, DIBASIC, ANHYDROUS\SODIUM PHOSPHATE, MONOBASIC, ANHYDROUS
     Route: 065
  3. LANTUS [Concomitant]
     Active Substance: INSULIN GLARGINE
     Route: 065
  4. NORVASC [Concomitant]
     Active Substance: AMLODIPINE BESYLATE
     Dates: start: 20171113, end: 20171209
  5. RENVELA [Concomitant]
     Active Substance: SEVELAMER CARBONATE
     Dates: start: 20171119, end: 20171125
  6. DIFLUCAN [Concomitant]
     Active Substance: FLUCONAZOLE
     Dates: start: 20171120, end: 20171214
  7. IDARUBICIN [Suspect]
     Active Substance: IDARUBICIN
     Indication: ACUTE MYELOID LEUKAEMIA
     Dosage: 29 MILLIGRAM DAILY;
     Route: 042
     Dates: start: 20171117, end: 20171119
  8. AVELOX [Concomitant]
     Active Substance: MOXIFLOXACIN HYDROCHLORIDE
     Route: 065
     Dates: start: 20171118, end: 20171122
  9. SENNOSIDE A+B [Concomitant]
     Active Substance: SENNOSIDES A AND B
  10. SUBLIMAZE [Concomitant]
     Active Substance: FENTANYL CITRATE
     Dates: start: 20171114
  11. VERSED [Concomitant]
     Active Substance: MIDAZOLAM HYDROCHLORIDE
     Dates: start: 20171114
  12. POTASSIUM CHLORIDE. [Concomitant]
     Active Substance: POTASSIUM CHLORIDE
     Dates: start: 20171113, end: 20171207
  13. GLUCOSE [Concomitant]
     Active Substance: DEXTROSE
     Dates: start: 20171115, end: 20171208
  14. ATIVAN [Concomitant]
     Active Substance: LORAZEPAM
     Route: 065
     Dates: start: 20171117, end: 20180104
  15. ELITEK [Concomitant]
     Active Substance: RASBURICASE
     Route: 065
  16. COMPAZINE [Concomitant]
     Active Substance: PROCHLORPERAZINE MALEATE
     Route: 065
  17. NORMAL SALINE [Concomitant]
     Active Substance: SODIUM CHLORIDE
  18. SODIUM CHLORIDE. [Concomitant]
     Active Substance: SODIUM CHLORIDE
     Dates: start: 20171112, end: 20180104
  19. DEXTROSE. [Concomitant]
     Active Substance: DEXTROSE
     Dates: start: 20171115, end: 20171208
  20. CYTARABINE. [Suspect]
     Active Substance: CYTARABINE
     Indication: ACUTE MYELOID LEUKAEMIA
     Dosage: 240 MILLIGRAM DAILY;
     Route: 042
     Dates: start: 20171117, end: 20171123
  21. LIDOCAINE. [Concomitant]
     Active Substance: LIDOCAINE
     Dates: start: 20171113, end: 20180104
  22. K?LYTE [Concomitant]
     Dates: start: 20171114, end: 20171126
  23. MAGNESIUM SULFATE. [Concomitant]
     Active Substance: MAGNESIUM SULFATE
     Dates: start: 20171115, end: 20171207
  24. HUMALOG [Concomitant]
     Active Substance: INSULIN LISPRO
     Dates: start: 20171116, end: 20171209
  25. ZOSYN [Concomitant]
     Active Substance: PIPERACILLIN SODIUM\TAZOBACTAM SODIUM
     Route: 065
     Dates: start: 20171122
  26. MIDAZOLAM HYDROCHLORIDE. [Concomitant]
     Active Substance: MIDAZOLAM HYDROCHLORIDE
  27. ALLOPURINOL. [Concomitant]
     Active Substance: ALLOPURINOL
  28. ZYLOPRIM [Concomitant]
     Active Substance: ALLOPURINOL
     Dates: start: 20171122, end: 20171124
  29. HYDREA [Concomitant]
     Active Substance: HYDROXYUREA
     Dates: start: 20171112, end: 20171117
  30. VANCOMYCIN [Concomitant]
     Active Substance: VANCOMYCIN
     Route: 065
     Dates: start: 20171114, end: 20171224
  31. FENTANYL. [Concomitant]
     Active Substance: FENTANYL
  32. SENOKOT [Concomitant]
     Active Substance: SENNOSIDES
     Dates: start: 20171112, end: 20180104
  33. ELAVIL [Concomitant]
     Active Substance: AMITRIPTYLINE HYDROCHLORIDE
     Dates: start: 20171113, end: 20171113
  34. PHENOL. [Concomitant]
     Active Substance: PHENOL
     Dates: start: 20171113, end: 20180104
  35. CIPRO [Concomitant]
     Active Substance: CIPROFLOXACIN HYDROCHLORIDE
     Dates: start: 20171114, end: 20171122
  36. K?DUR [Concomitant]
     Active Substance: POTASSIUM CHLORIDE
     Dates: start: 20171115, end: 20171118
  37. MELATONIN [Concomitant]
     Active Substance: MELATONIN
     Dates: start: 20171116, end: 20171217
  38. EMEND [Concomitant]
     Active Substance: APREPITANT
     Dates: start: 20171117, end: 20171120
  39. ASP2215 [Suspect]
     Active Substance: GILTERITINIB
     Indication: ACUTE MYELOID LEUKAEMIA
     Dosage: 200 MILLIGRAM DAILY;
     Route: 048
     Dates: start: 20171120, end: 20171203
  40. ZOVIRAX [Concomitant]
     Active Substance: ACYCLOVIR
     Route: 065
     Dates: start: 20171119, end: 20180104
  41. COLACE [Concomitant]
     Active Substance: DOCUSATE SODIUM
     Route: 065
     Dates: start: 20171112, end: 20171127
  42. ZOFRAN [Concomitant]
     Active Substance: ONDANSETRON HYDROCHLORIDE
     Route: 065
  43. TYLENOL [Concomitant]
     Active Substance: ACETAMINOPHEN
     Route: 065
     Dates: start: 20171114, end: 20171127
  44. LASIX [Concomitant]
     Active Substance: FUROSEMIDE
     Route: 065
     Dates: start: 20171118, end: 20180104
  45. AMLODIPINE [Concomitant]
     Active Substance: AMLODIPINE BESYLATE
     Route: 065
  46. XYLOCAINE [Concomitant]
     Active Substance: LIDOCAINE HYDROCHLORIDE
     Dates: start: 20171113, end: 20171113
  47. NEOSYNEPHRINE [Concomitant]
     Active Substance: PHENYLEPHRINE HYDROCHLORIDE
     Dates: start: 20171113, end: 20171113

REACTIONS (5)
  - Neutropenic colitis [Fatal]
  - Acute kidney injury [Recovered/Resolved]
  - Respiratory failure [Recovered/Resolved]
  - Fungaemia [Recovered/Resolved]
  - Febrile neutropenia [Recovered/Resolved]

NARRATIVE: CASE EVENT DATE: 20171122
